FAERS Safety Report 9445387 (Version 1)
Quarter: 2013Q3

REPORT INFORMATION
  Report Type: Spontaneous
  Country: US (occurrence: US)
  Receive Date: 20130807
  Receipt Date: 20130807
  Transmission Date: 20140515
  Serious: No
  Sender: FDA-Public Use
  Company Number: US-ROXANE LABORATORIES, INC.-2013-RO-01320RO

PATIENT
  Sex: Female

DRUGS (15)
  1. AZATHIOPRINE [Suspect]
     Indication: GRANULOMATOSIS WITH POLYANGIITIS
     Dosage: 175 MG
  2. PREDNISONE [Suspect]
     Indication: GRANULOMATOSIS WITH POLYANGIITIS
     Dosage: 12.5 MG
  3. WARFARIN [Suspect]
     Indication: THROMBOSIS
     Dosage: 5 MG
     Route: 048
     Dates: start: 20130705
  4. WARFARIN [Suspect]
     Dosage: 10 MG
     Route: 048
  5. WARFARIN [Suspect]
     Dosage: 15 MG
     Route: 048
  6. SERTRALINE [Suspect]
     Indication: DEPRESSION
  7. ENOXAPARIN [Concomitant]
     Indication: THROMBOSIS
     Dosage: 160 MG
     Route: 058
  8. ENOXAPARIN [Concomitant]
     Indication: ANTICOAGULANT THERAPY
  9. IVIG [Concomitant]
     Indication: GRANULOMATOSIS WITH POLYANGIITIS
     Route: 042
  10. AMLODIPINE [Concomitant]
     Indication: HYPERTENSION
     Dosage: 5 MG
  11. MULTIVITAMIN [Concomitant]
  12. FOLIC ACID [Concomitant]
  13. FAMOTIDINE [Concomitant]
     Indication: PROPHYLAXIS
  14. ANTIBIOTIC [Concomitant]
     Indication: NASAL INFLAMMATION
     Route: 045
  15. BUDESONIDE [Concomitant]
     Indication: NASAL INFLAMMATION
     Route: 045

REACTIONS (1)
  - Unevaluable event [Unknown]
